FAERS Safety Report 18093481 (Version 1)
Quarter: 2020Q3

REPORT INFORMATION
  Report Type: Spontaneous
  Country: AU (occurrence: AU)
  Receive Date: 20200730
  Receipt Date: 20200730
  Transmission Date: 20201103
  Serious: Yes (Other)
  Sender: FDA-Public Use
  Company Number: AU-PFIZER INC-2020288509

PATIENT

DRUGS (2)
  1. ENCORAFENIB [Suspect]
     Active Substance: ENCORAFENIB
     Dosage: UNK
     Route: 065
  2. BINIMETINIB [Suspect]
     Active Substance: BINIMETINIB
     Dosage: UNK
     Route: 065

REACTIONS (3)
  - Rash [Unknown]
  - Liver disorder [Unknown]
  - Lethargy [Unknown]
